FAERS Safety Report 7909006-9 (Version None)
Quarter: 2011Q4

REPORT INFORMATION
  Report Type: 
  Country: None (occurrence: None)
  Receive Date: 20111111
  Receipt Date: 20111103
  Transmission Date: 20120403
  Serious: Yes (Hospitalization)
  Sender: FDA-Public Use
  Company Number: PHFR2011GB05854

PATIENT
  Sex: Male

DRUGS (8)
  1. CLOZARIL [Suspect]
     Dosage: 100 MG, UNK
     Dates: start: 20111011
  2. LAXILO [Concomitant]
  3. OLANZAPINE [Concomitant]
  4. LAMOTRIGINE [Concomitant]
  5. RAMIPRIL [Concomitant]
  6. FUROSEMIDE [Concomitant]
  7. VALPROIC ACID [Concomitant]
  8. TAMSULOSIN HCL [Concomitant]

REACTIONS (1)
  - DRUG ADMINISTRATION ERROR [None]
